FAERS Safety Report 23211597 (Version 1)
Quarter: 2023Q4

REPORT INFORMATION
  Report Type: Spontaneous
  Country: US (occurrence: None)
  Receive Date: 20231121
  Receipt Date: 20231121
  Transmission Date: 20240110
  Serious: Yes (Death, Hospitalization)
  Sender: FDA-Public Use
  Company Number: None

PATIENT
  Age: 56 Year
  Sex: Male
  Weight: 128.4 kg

DRUGS (1)
  1. CISPLATIN [Suspect]
     Active Substance: CISPLATIN
     Dates: end: 20231017

REACTIONS (6)
  - Fall [None]
  - Mental status changes [None]
  - Dyspnoea [None]
  - Tachycardia [None]
  - Pulse absent [None]
  - Ventricular tachycardia [None]

NARRATIVE: CASE EVENT DATE: 20231104
